FAERS Safety Report 5292086-X (Version None)
Quarter: 2007Q2

REPORT INFORMATION
  Report Type: 
  Country: None (occurrence: None)
  Receive Date: 20070403
  Receipt Date: 20070321
  Transmission Date: 20071010
  Serious: Yes (Death, Hospitalization)
  Sender: FDA-Public Use
  Company Number: 2007EU000683

PATIENT
  Age: 68 Year
  Sex: Female

DRUGS (5)
  1. PROGRAF [Suspect]
     Indication: RENAL TRANSPLANT
     Dosage: ORAL
     Route: 048
     Dates: start: 20060831, end: 20061002
  2. PLAVIX [Suspect]
     Dosage: ORAL
     Route: 048
     Dates: start: 20060911, end: 20061010
  3. PREDNISONE [Concomitant]
  4. KARDEGIC (ACETYLSALICYLATE LYSINE) [Concomitant]
  5. CELLCEPT [Concomitant]

REACTIONS (23)
  - ATRIAL FIBRILLATION [None]
  - BLOOD LACTATE DEHYDROGENASE INCREASED [None]
  - CARDIAC ARREST [None]
  - COAGULOPATHY [None]
  - CONFUSIONAL STATE [None]
  - DUST INHALATION PNEUMOPATHY [None]
  - DYSKINESIA [None]
  - HAEMATEMESIS [None]
  - HAEMOGLOBINURIA [None]
  - HAEMOLYTIC URAEMIC SYNDROME [None]
  - HAEMOPTYSIS [None]
  - HAPTOGLOBIN DECREASED [None]
  - MELAENA [None]
  - METABOLIC ACIDOSIS [None]
  - MULTI-ORGAN FAILURE [None]
  - OESOPHAGEAL ULCER [None]
  - PYREXIA [None]
  - RENAL FAILURE ACUTE [None]
  - RESPIRATORY ACIDOSIS [None]
  - SHOCK [None]
  - THROMBOCYTOPENIA [None]
  - THROMBOSIS [None]
  - TRANSAMINASES INCREASED [None]
